FAERS Safety Report 23880448 (Version 1)
Quarter: 2024Q2

REPORT INFORMATION
  Report Type: Spontaneous
  Country: JP (occurrence: JP)
  Receive Date: 20240521
  Receipt Date: 20240521
  Transmission Date: 20240716
  Serious: Yes (Other)
  Sender: FDA-Public Use
  Company Number: JP-BRISTOL-MYERS SQUIBB COMPANY-2023-174197

PATIENT
  Age: 76 Year
  Sex: Male

DRUGS (3)
  1. ELIQUIS [Suspect]
     Active Substance: APIXABAN
     Indication: Thrombosis prophylaxis
     Route: 048
     Dates: start: 202202
  2. ELIQUIS [Suspect]
     Active Substance: APIXABAN
     Indication: Embolism venous
  3. CANDESARTAN [Suspect]
     Active Substance: CANDESARTAN
     Indication: Hypertension
     Route: 048
     Dates: start: 20231107, end: 20231124

REACTIONS (3)
  - Dermatitis bullous [Unknown]
  - Drug eruption [Unknown]
  - Erythema ab igne [Unknown]

NARRATIVE: CASE EVENT DATE: 20231101
